FAERS Safety Report 4448202-2 (Version None)
Quarter: 2004Q3

REPORT INFORMATION
  Report Type: 
  Country: None (occurrence: None)
  Receive Date: 20040913
  Receipt Date: 20040813
  Transmission Date: 20050211
  Serious: Yes (Other)
  Sender: FDA-Public Use
  Company Number: JP-GLAXOSMITHKLINE-B0343101A

PATIENT
  Age: 66 Year
  Sex: Male
  Weight: 70 kg

DRUGS (6)
  1. ZANTAC [Suspect]
     Dosage: 150MG TWICE PER DAY
     Route: 048
     Dates: start: 20040806, end: 20040812
  2. SELBEX [Concomitant]
     Dosage: 150MG THREE TIMES PER DAY
     Route: 048
     Dates: start: 20040806
  3. MAGNESIUM OXIDE [Concomitant]
     Dosage: .5G PER DAY
     Route: 048
     Dates: start: 20040811
  4. SOLDEM-3 [Concomitant]
     Dosage: 500ML PER DAY
     Route: 042
     Dates: start: 20040805, end: 20040809
  5. POTACOL-R [Concomitant]
     Dosage: 500ML PER DAY
     Route: 042
     Dates: start: 20040805, end: 20040809
  6. UNKNOWN DRUG [Concomitant]
     Dosage: 200ML PER DAY
     Route: 042
     Dates: start: 20040805, end: 20040809

REACTIONS (9)
  - ALANINE AMINOTRANSFERASE INCREASED [None]
  - ASPARTATE AMINOTRANSFERASE INCREASED [None]
  - BLOOD CREATININE INCREASED [None]
  - BLOOD LACTATE DEHYDROGENASE INCREASED [None]
  - BLOOD URINE PRESENT [None]
  - C-REACTIVE PROTEIN INCREASED [None]
  - GAMMA-GLUTAMYLTRANSFERASE INCREASED [None]
  - RED BLOOD CELLS URINE [None]
  - RENAL DISORDER [None]
